FAERS Safety Report 4883922-7 (Version None)
Quarter: 2006Q1

REPORT INFORMATION
  Report Type: 
  Country: None (occurrence: None)
  Receive Date: 20060113
  Receipt Date: 20060104
  Transmission Date: 20060701
  Serious: Yes (Hospitalization)
  Sender: FDA-Public Use
  Company Number: FR200601000321

PATIENT
  Age: 83 Year
  Sex: Female

DRUGS (6)
  1. ZYPREXA [Suspect]
     Indication: PSYCHOTIC DISORDER
     Dosage: 5 MG, DAILY (1/D), ORAL
     Route: 048
  2. MEMANTINE HCL [Concomitant]
  3. ALPRAZOLAM [Concomitant]
  4. SULFARLEM (ANETHOLE TRITHIONE) [Concomitant]
  5. DIAMICRON /NET/ (GLICLAZIDE) [Concomitant]
  6. AMLODIPINE BESYLATE [Concomitant]

REACTIONS (7)
  - BLOOD PRESSURE SYSTOLIC INCREASED [None]
  - CONFUSIONAL STATE [None]
  - DEHYDRATION [None]
  - DEMENTIA [None]
  - HALLUCINATION [None]
  - OEDEMA PERIPHERAL [None]
  - SPEECH DISORDER [None]
